FAERS Safety Report 9717599 (Version 4)
Quarter: 2014Q4

REPORT INFORMATION
  Report Type: Spontaneous
  Country: IL (occurrence: IL)
  Receive Date: 20131127
  Receipt Date: 20141103
  Transmission Date: 20150529
  Serious: Yes (Hospitalization)
  Sender: FDA-Public Use
  Company Number: IL-ABBVIE-13P-082-1079707-00

PATIENT
  Sex: Female

DRUGS (8)
  1. FUSID [Suspect]
     Active Substance: FUROSEMIDE
     Indication: OEDEMA
     Route: 065
  2. MINERALS NOS [Concomitant]
     Active Substance: MINERALS
     Indication: PRODUCT USED FOR UNKNOWN INDICATION
  3. CALCIUM + VIT D [Concomitant]
     Active Substance: CALCIUM\VITAMIN D
     Indication: PRODUCT USED FOR UNKNOWN INDICATION
  4. IRON [Concomitant]
     Active Substance: IRON
     Indication: PRODUCT USED FOR UNKNOWN INDICATION
  5. HUMIRA [Suspect]
     Active Substance: ADALIMUMAB
     Indication: RHEUMATOID ARTHRITIS
     Route: 058
     Dates: start: 20121218, end: 2014
  6. HUMIRA [Suspect]
     Active Substance: ADALIMUMAB
     Indication: RHEUMATOID ARTHRITIS
     Route: 058
     Dates: start: 2014
  7. PREDNISONE. [Suspect]
     Active Substance: PREDNISONE
     Indication: PRODUCT USED FOR UNKNOWN INDICATION
     Route: 065
  8. METHOTREXATE [Suspect]
     Active Substance: METHOTREXATE
     Indication: PRODUCT USED FOR UNKNOWN INDICATION
     Route: 065

REACTIONS (16)
  - Diabetes mellitus [Unknown]
  - Inflammatory marker increased [Unknown]
  - Arthralgia [Unknown]
  - Injection site pain [Not Recovered/Not Resolved]
  - Oedema [Unknown]
  - Arthralgia [Recovered/Resolved]
  - Injection site pain [Unknown]
  - Pain [Unknown]
  - Diarrhoea [Not Recovered/Not Resolved]
  - Spondylitis [Recovered/Resolved]
  - Drug ineffective [Unknown]
  - Condition aggravated [Unknown]
  - Back pain [Recovered/Resolved]
  - White blood cell count decreased [Unknown]
  - Weight increased [Unknown]
  - Liver function test abnormal [Unknown]

NARRATIVE: CASE EVENT DATE: 2012
